FAERS Safety Report 5255693-6 (Version None)
Quarter: 2007Q1

REPORT INFORMATION
  Report Type: 
  Country: None (occurrence: None)
  Receive Date: 20070305
  Receipt Date: 20070222
  Transmission Date: 20070707
  Serious: Yes (Hospitalization, Other)
  Sender: FDA-Public Use
  Company Number: FR-PFIZER INC-2007011059

PATIENT
  Sex: Female

DRUGS (5)
  1. LYRICA [Suspect]
     Indication: FIBROMYALGIA
  2. LYRICA [Suspect]
     Indication: NEURALGIA
  3. FLECAINIDE ACETATE [Concomitant]
  4. ASPEGIC 1000 [Concomitant]
  5. GINKOR [Concomitant]

REACTIONS (3)
  - ERYTHEMA MULTIFORME [None]
  - LIP SWELLING [None]
  - STOMATITIS NECROTISING [None]
